FAERS Safety Report 10706680 (Version 1)
Quarter: 2015Q1

REPORT INFORMATION
  Report Type: Spontaneous
  Country: US (occurrence: None)
  Receive Date: 20150109
  Receipt Date: 20150109
  Transmission Date: 20150721
  Serious: Yes (Hospitalization)
  Sender: FDA-Public Use
  Company Number: 2015-US-000068

PATIENT
  Age: 62 Year
  Sex: Female
  Weight: 115.6 kg

DRUGS (3)
  1. STATIN (STATIN MEDICATION) [Concomitant]
  2. XYREM [Suspect]
     Active Substance: SODIUM OXYBATE
     Indication: HYPERSOMNIA
     Route: 048
     Dates: start: 201112, end: 2011
  3. ANTIHYPERTENSIVES (HIGH BLOOD PRESSURE MEDICATION) [Concomitant]

REACTIONS (4)
  - Fall [None]
  - Off label use [None]
  - Arthralgia [None]
  - Knee arthroplasty [None]

NARRATIVE: CASE EVENT DATE: 20150102
